FAERS Safety Report 22371417 (Version 1)
Quarter: 2023Q2

REPORT INFORMATION
  Report Type: Spontaneous
  Country: US (occurrence: None)
  Receive Date: 20230525
  Receipt Date: 20230525
  Transmission Date: 20230721
  Serious: No
  Sender: FDA-Public Use
  Company Number: None

PATIENT
  Sex: Male

DRUGS (28)
  1. ABIRATERONE [Suspect]
     Active Substance: ABIRATERONE
     Indication: Prostate cancer
     Dosage: OTHER QUANTITY : 4T;?FREQUENCY : DAILY;?
     Route: 048
  2. ACETAMINOPHEN\CODEINE PHOSPHATE [Concomitant]
     Active Substance: ACETAMINOPHEN\CODEINE PHOSPHATE
  3. ALBUTEROL SULFATE HFA INHALATION [Concomitant]
  4. AMOXICILLIN [Concomitant]
     Active Substance: AMOXICILLIN
  5. ABILIFY [Concomitant]
     Active Substance: ARIPIPRAZOLE
  6. LIPITOR [Concomitant]
     Active Substance: ATORVASTATIN CALCIUM
  7. VITAMIN D3 [Concomitant]
     Active Substance: CHOLECALCIFEROL
  8. DOXYLAMINE [Concomitant]
     Active Substance: DOXYLAMINE
  9. TRULICITY [Concomitant]
     Active Substance: DULAGLUTIDE
  10. CYMBALTA [Concomitant]
     Active Substance: DULOXETINE HYDROCHLORIDE
  11. DARD CUNNINGHAM INCONTIN CLAMP [Concomitant]
  12. FENOFIBRATE [Concomitant]
     Active Substance: FENOFIBRATE
  13. TRESIBA SUBCUTANEOUS [Concomitant]
  14. LISINOPRIL [Concomitant]
     Active Substance: LISINOPRIL
  15. MAGNESIUM [Concomitant]
     Active Substance: MAGNESIUM
  16. TOPROL XL [Concomitant]
     Active Substance: METOPROLOL SUCCINATE
  17. NATEGLINIDE [Concomitant]
     Active Substance: NATEGLINIDE
  18. OMEGA-3 ACIDS [Concomitant]
     Active Substance: OMEGA-3 FATTY ACIDS
  19. ZOFRAN [Concomitant]
     Active Substance: ONDANSETRON HYDROCHLORIDE
  20. PROTONIX [Concomitant]
     Active Substance: PANTOPRAZOLE SODIUM
  21. PREDNISONE [Concomitant]
     Active Substance: PREDNISONE
  22. ZOLOFT [Concomitant]
     Active Substance: SERTRALINE HYDROCHLORIDE
  23. THIAMINE MONONITRATE [Concomitant]
     Active Substance: THIAMINE MONONITRATE
  24. ELIQUIS [Concomitant]
     Active Substance: APIXABAN
  25. FERROUS SULFATE [Concomitant]
     Active Substance: FERROUS SULFATE
  26. ONE TOUCH VERIO FLEX SYSTEM [Concomitant]
  27. LANCENTS [Concomitant]
  28. PEN NEEDLES [Concomitant]

REACTIONS (1)
  - Hospice care [None]
